FAERS Safety Report 20758407 (Version 1)
Quarter: 2022Q2

REPORT INFORMATION
  Report Type: Spontaneous
  Country: US (occurrence: None)
  Receive Date: 20220427
  Receipt Date: 20220427
  Transmission Date: 20220721
  Serious: No
  Sender: FDA-Public Use
  Company Number: None

PATIENT

DRUGS (2)
  1. DEXAMETHASONE [Suspect]
     Active Substance: DEXAMETHASONE
  2. DICLOFENAC SODIUM [Suspect]
     Active Substance: DICLOFENAC SODIUM

REACTIONS (3)
  - Product dispensing error [None]
  - Product name confusion [None]
  - Product packaging confusion [None]
